FAERS Safety Report 4531503-7 (Version None)
Quarter: 2004Q4

REPORT INFORMATION
  Report Type: 
  Country: None (occurrence: None)
  Receive Date: 20041220
  Receipt Date: 20041208
  Transmission Date: 20050328
  Serious: Yes (Life-Threatening, Hospitalization)
  Sender: FDA-Public Use
  Company Number: US-JNJFOC-20041202685

PATIENT

DRUGS (1)
  1. REMICADE [Suspect]
     Indication: REITER'S SYNDROME
     Route: 042

REACTIONS (1)
  - HEPATIC FAILURE [None]
